FAERS Safety Report 9915287 (Version 1)
Quarter: 2014Q1

REPORT INFORMATION
  Report Type: Spontaneous
  Country: US (occurrence: US)
  Receive Date: 20140221
  Receipt Date: 20140221
  Transmission Date: 20141002
  Serious: Yes (Hospitalization, Other)
  Sender: FDA-Public Use
  Company Number: US-ROCHE-1349661

PATIENT
  Sex: Male

DRUGS (1)
  1. XELODA [Suspect]
     Indication: COLORECTAL CANCER
     Dosage: 2 X 500MG TABS IN THE MORNING AND 2 X 500MG TABS IN THE EVENING
     Route: 048
     Dates: start: 201305

REACTIONS (5)
  - Colon operation [Unknown]
  - Constipation [Unknown]
  - Decreased appetite [Unknown]
  - Colostomy [Unknown]
  - Diarrhoea [Unknown]
